FAERS Safety Report 5850486-0 (Version None)
Quarter: 2008Q3

REPORT INFORMATION
  Report Type: 
  Country: None (occurrence: None)
  Receive Date: 20080818
  Receipt Date: 20070905
  Transmission Date: 20090109
  Serious: Yes (Hospitalization)
  Sender: FDA-Public Use
  Company Number: WAES 0709USA01977

PATIENT
  Age: 55 Year
  Sex: Female

DRUGS (7)
  1. EMEND [Suspect]
     Dosage: UNK/UNK/PO
     Route: 048
  2. CETUXIMAB 400 MG/M[2] [Suspect]
     Indication: COLON CANCER
     Dosage: UNK/UNK/IV
     Route: 042
     Dates: start: 20070808, end: 20070808
  3. LEUCOVORIN CALCIUM [Suspect]
     Indication: COLON CANCER
     Dosage: UNK/UNK/IV
     Route: 042
     Dates: start: 20070808, end: 20070808
  4. FLUOROURACIL [Suspect]
     Indication: COLON CANCER
     Dosage: UNK/UNK/IV
     Route: 042
     Dates: start: 20070808, end: 20070808
  5. OXALIPLATIN [Suspect]
     Indication: COLON CANCER
     Dosage: UNK/UNK/IV
     Route: 042
     Dates: start: 20070808, end: 20070808
  6. MARINOL [Suspect]
     Dosage: UNK/UNK/UNK
  7. PROTONIX [Suspect]
     Dosage: UNK/UNK/UNK

REACTIONS (10)
  - ABDOMINAL PAIN [None]
  - BLOOD CULTURE POSITIVE [None]
  - CALCULUS URETERIC [None]
  - DRUG TOXICITY [None]
  - DYSURIA [None]
  - ESCHERICHIA INFECTION [None]
  - HYDRONEPHROSIS [None]
  - INFECTION [None]
  - NAUSEA [None]
  - PERINEPHRIC COLLECTION [None]
